FAERS Safety Report 9435022 (Version 2)
Quarter: 2013Q3

REPORT INFORMATION
  Report Type: Report from Study
  Country: IL (occurrence: IL)
  Receive Date: 20130801
  Receipt Date: 20130830
  Transmission Date: 20140515
  Serious: Yes (Other)
  Sender: FDA-Public Use
  Company Number: PHHY2013IL081734

PATIENT
  Age: 37 Year
  Sex: Female

DRUGS (2)
  1. SANDOSTATIN LAR [Suspect]
     Indication: CARCINOID TUMOUR
     Dosage: 60 MG, 1Q4W
     Dates: start: 20100701
  2. SANDOSTATIN LAR [Suspect]
     Dosage: UNK UKN, UNK
     Dates: start: 20130627

REACTIONS (1)
  - Lung neoplasm [Unknown]
